FAERS Safety Report 4379357-6 (Version None)
Quarter: 2004Q2

REPORT INFORMATION
  Report Type: 
  Country: None (occurrence: None)
  Receive Date: 20040615
  Receipt Date: 20040610
  Transmission Date: 20050107
  Serious: Yes (Life-Threatening, Hospitalization)
  Sender: FDA-Public Use
  Company Number: 04-06-0829

PATIENT
  Age: 70 Year
  Sex: Male

DRUGS (3)
  1. METFORMIN HCL [Suspect]
     Indication: DIABETES MELLITUS NON-INSULIN-DEPENDENT
     Dosage: 500MG TDS ORAL
     Route: 048
     Dates: start: 20031001, end: 20040518
  2. IBUPROFEN [Suspect]
     Indication: PAIN
     Dosage: ORAL
     Route: 048
     Dates: start: 20040511, end: 20040518
  3. GLYBURIDE [Concomitant]

REACTIONS (7)
  - DECUBITUS ULCER [None]
  - DUODENAL ULCER HAEMORRHAGE [None]
  - GASTRIC ULCER HAEMORRHAGE [None]
  - HAEMORRHAGE [None]
  - LACTIC ACIDOSIS [None]
  - REFLUX OESOPHAGITIS [None]
  - RENAL FAILURE ACUTE [None]
